FAERS Safety Report 5032573-2 (Version None)
Quarter: 2006Q2

REPORT INFORMATION
  Report Type: 
  Country: None (occurrence: None)
  Receive Date: 20060620
  Receipt Date: 20060612
  Transmission Date: 20061013
  Serious: Yes (Death, Hospitalization)
  Sender: FDA-Public Use
  Company Number: US-2006-014930

PATIENT
  Age: 53 Year
  Sex: Female

DRUGS (1)
  1. BETAPACE [Suspect]
     Dosage: ORAL
     Route: 048

REACTIONS (2)
  - BRAIN DEATH [None]
  - DYSPNOEA [None]
